FAERS Safety Report 6248561-4 (Version None)
Quarter: 2009Q2

REPORT INFORMATION
  Report Type: 
  Country: None (occurrence: None)
  Receive Date: 20090624
  Receipt Date: 20090624
  Transmission Date: 20091009
  Serious: Yes (Life-Threatening)
  Sender: FDA-Public Use
  Company Number: None

PATIENT
  Age: 48 Year
  Sex: Female

DRUGS (1)
  1. SERAX [Suspect]
     Indication: PROPHYLAXIS
     Dosage: 15MG PO Q8HR
     Route: 048
     Dates: start: 20090401

REACTIONS (2)
  - AGITATION [None]
  - UNEVALUABLE EVENT [None]
